FAERS Safety Report 21549737 (Version 1)
Quarter: 2022Q4

REPORT INFORMATION
  Report Type: Spontaneous
  Country: US (occurrence: US)
  Receive Date: 20221103
  Receipt Date: 20221103
  Transmission Date: 20230113
  Serious: No
  Sender: FDA-Public Use
  Company Number: US-MYOVANT SCIENCES GMBH-2022MYSCI1000110

PATIENT
  Sex: Male

DRUGS (8)
  1. ORGOVYX [Suspect]
     Active Substance: RELUGOLIX
     Indication: Prostate cancer
     Dosage: 360 MILLIGRAM, ONE TIME DOSE
     Route: 048
     Dates: start: 20220919, end: 20220919
  2. ORGOVYX [Suspect]
     Active Substance: RELUGOLIX
     Dosage: 120 MILLIGRAM, QD
     Route: 048
     Dates: start: 20220920
  3. HYDROCHLOROTHIAZIDE\LISINOPRIL [Concomitant]
     Active Substance: HYDROCHLOROTHIAZIDE\LISINOPRIL
     Indication: Hypertension
     Dosage: 1 DOSAGE FORM (20-12.5 MG), QD
     Route: 065
     Dates: start: 2012
  4. WARFARIN [Concomitant]
     Active Substance: WARFARIN
     Indication: Anticoagulant therapy
     Dosage: 1 DOSAGE FORM (7.5 -10 MG ), QD
     Route: 065
     Dates: start: 200211
  5. AMLODIPINE [Concomitant]
     Active Substance: AMLODIPINE BESYLATE
     Indication: Hypertension
     Dosage: 1 DOSAGE FORM (5 MG), QD
     Route: 065
     Dates: start: 2020
  6. FLOMAX                             /01280302/ [Concomitant]
     Indication: Micturition disorder
     Dosage: 1 DOSAGE FORM, QD
     Route: 065
     Dates: start: 20211003, end: 20211202
  7. PRILOSEC [Concomitant]
     Active Substance: OMEPRAZOLE MAGNESIUM
     Indication: Dyspepsia
     Dosage: UNK, QOD
     Route: 065
     Dates: start: 2000
  8. FINASTERIDE [Concomitant]
     Active Substance: FINASTERIDE
     Indication: Micturition disorder
     Dosage: 1 DOSAGE FORM (5 MG ), QD
     Route: 065
     Dates: start: 2022

REACTIONS (1)
  - Hot flush [Recovered/Resolved]
